FAERS Safety Report 4762366-2 (Version None)
Quarter: 2005Q3

REPORT INFORMATION
  Report Type: 
  Country: None (occurrence: None)
  Receive Date: 20050902
  Receipt Date: 20050520
  Transmission Date: 20060218
  Serious: Yes (Other)
  Sender: FDA-Public Use
  Company Number: 2005S1004135

PATIENT
  Age: 52 Year
  Sex: Female
  Weight: 62.5964 kg

DRUGS (7)
  1. FENTANYL [Suspect]
     Indication: BACK PAIN
     Dosage: 50 MCG/HR; Q3D; TDER
     Dates: start: 20050515, end: 20050530
  2. CARISOPRODOL [Concomitant]
  3. PETHIDINE [Concomitant]
  4. ANASTROZOLE [Concomitant]
  5. SUMATRIPTAN SUCCINATE [Concomitant]
  6. BUPROPION HYDROCHLORIDE [Concomitant]
  7. VENLAFAXINE HYDROCHLORIDE [Concomitant]

REACTIONS (5)
  - DRUG EFFECT DECREASED [None]
  - DRUG WITHDRAWAL SYNDROME [None]
  - HYPERHIDROSIS [None]
  - RESTLESSNESS [None]
  - TREMOR [None]
